FAERS Safety Report 21680815 (Version 1)
Quarter: 2022Q4

REPORT INFORMATION
  Report Type: Spontaneous
  Country: US (occurrence: US)
  Receive Date: 20221205
  Receipt Date: 20221205
  Transmission Date: 20230113
  Serious: No
  Sender: FDA-Public Use
  Company Number: US-APOTEX-2022AP010929

PATIENT
  Age: 31 Year
  Sex: Female

DRUGS (2)
  1. MEMANTINE [Suspect]
     Active Substance: MEMANTINE
     Indication: Catatonia
     Dosage: 10 MILLIGRAM
     Route: 065
  2. AMANTADINE [Suspect]
     Active Substance: AMANTADINE
     Indication: Catatonia
     Dosage: 100 MILLIGRAM, BID
     Route: 065

REACTIONS (1)
  - Agitation [Unknown]
